FAERS Safety Report 6155613-6 (Version None)
Quarter: 2009Q2

REPORT INFORMATION
  Report Type: 
  Country: None (occurrence: None)
  Receive Date: 20090415
  Receipt Date: 20090402
  Transmission Date: 20091009
  Serious: Yes (Life-Threatening)
  Sender: FDA-Public Use
  Company Number: ES-CELGENEUS-144-21880-09030910

PATIENT
  Sex: Male
  Weight: 70 kg

DRUGS (3)
  1. REVLIMID [Suspect]
     Indication: MYELOFIBROSIS
     Route: 048
     Dates: start: 20090210, end: 20090303
  2. REVLIMID [Suspect]
     Route: 048
  3. EXJADE [Concomitant]
     Indication: IRON OVERLOAD
     Route: 065
     Dates: start: 20090202

REACTIONS (1)
  - PANCYTOPENIA [None]
